FAERS Safety Report 7688706 (Version 2)
Quarter: 2020Q3

REPORT INFORMATION
  Report Type: Spontaneous
  Country: GB (occurrence: GB)
  Receive Date: 20101201
  Receipt Date: 20110308
  Transmission Date: 20201105
  Serious: Yes (Other)
  Sender: FDA-Public Use
  Company Number: GB-ROCHE-742738

PATIENT
  Age: 57 Year
  Sex: Female

DRUGS (31)
  1. IBANDRONIC ACID. [Suspect]
     Active Substance: IBANDRONIC ACID
     Indication: OSTEOPOROSIS
     Route: 042
     Dates: start: 20100715
  2. CARBIDOPA\LEVODOPA [Concomitant]
     Active Substance: CARBIDOPA\LEVODOPA
  3. CYCLIZINE [Concomitant]
     Active Substance: CYCLIZINE
  4. LORAZEPAM. [Concomitant]
     Active Substance: LORAZEPAM
  5. VITAMIN B12 [Concomitant]
     Active Substance: CYANOCOBALAMIN
     Dates: start: 20080918
  6. METRONIDAZOLE. [Concomitant]
     Active Substance: METRONIDAZOLE
  7. VITAMIN B12 [Concomitant]
     Active Substance: CYANOCOBALAMIN
     Dates: start: 20100127
  8. OMEPRAZOLE. [Concomitant]
     Active Substance: OMEPRAZOLE
  9. ETORICOXIB. [Concomitant]
     Active Substance: ETORICOXIB
  10. TRAMADOL HYDROCHLORIDE. [Concomitant]
     Active Substance: TRAMADOL HYDROCHLORIDE
  11. VITAMIN B12 [Concomitant]
     Active Substance: CYANOCOBALAMIN
     Dates: start: 20080725
  12. VITAMIN B12 [Concomitant]
     Active Substance: CYANOCOBALAMIN
     Dates: start: 20090420
  13. ENTACAPONE. [Concomitant]
     Active Substance: ENTACAPONE
  14. LEVOTHYROXINE SODIUM. [Concomitant]
     Active Substance: LEVOTHYROXINE SODIUM
  15. MIACALCIN [Concomitant]
     Active Substance: CALCITONIN SALMON
     Route: 050
  16. VITAMIN B12 [Concomitant]
     Active Substance: CYANOCOBALAMIN
     Dates: start: 20071023
  17. VITAMIN B12 [Concomitant]
     Active Substance: CYANOCOBALAMIN
     Dates: start: 20081210
  18. CALCIUM CARBONATE. [Concomitant]
     Active Substance: CALCIUM CARBONATE
  19. MIRTAZAPINE. [Concomitant]
     Active Substance: MIRTAZAPINE
  20. VITAMIN B12 [Concomitant]
     Active Substance: CYANOCOBALAMIN
     Dates: start: 20080116
  21. VITAMIN B12 [Concomitant]
     Active Substance: CYANOCOBALAMIN
     Dates: start: 20090804
  22. CARBIDOPA\LEVODOPA [Concomitant]
     Active Substance: CARBIDOPA\LEVODOPA
  23. DOMPERIDONE [Concomitant]
     Active Substance: DOMPERIDONE
  24. FENTANYL. [Concomitant]
     Active Substance: FENTANYL
     Dosage: FREQUENCY: 1 HOUR
     Route: 062
  25. FENTANYL. [Concomitant]
     Active Substance: FENTANYL
     Dosage: FREQUENCY: 1 HOUR
     Route: 062
  26. LEVOTHYROXINE SODIUM. [Concomitant]
     Active Substance: LEVOTHYROXINE SODIUM
  27. ROPINIROLE. [Concomitant]
     Active Substance: ROPINIROLE
  28. LEVOTHYROXINE SODIUM. [Concomitant]
     Active Substance: LEVOTHYROXINE SODIUM
  29. VITAMIN B12 [Concomitant]
     Active Substance: CYANOCOBALAMIN
     Dates: start: 20080409
  30. VITAMIN B12 [Concomitant]
     Active Substance: CYANOCOBALAMIN
     Dates: start: 20091028
  31. VITAMIN B12 [Concomitant]
     Active Substance: CYANOCOBALAMIN
     Dates: start: 20100617

REACTIONS (1)
  - Neutrophil count decreased [Unknown]

NARRATIVE: CASE EVENT DATE: 20100101
